FAERS Safety Report 16837211 (Version 1)
Quarter: 2019Q3

REPORT INFORMATION
  Report Type: Spontaneous
  Country: AU (occurrence: AU)
  Receive Date: 20190923
  Receipt Date: 20190923
  Transmission Date: 20191005
  Serious: No
  Sender: FDA-Public Use
  Company Number: AU-NOVEN PHARMACEUTICALS, INC.-AU2019000161

PATIENT

DRUGS (2)
  1. ESTRADIOL/NORETHISTERONE ACETATE [Suspect]
     Active Substance: ESTRADIOL\NORETHINDRONE ACETATE
     Indication: DEPRESSION
     Dosage: 50/250 OT, UNKNOWN
     Route: 065
  2. ESTRADIOL/NORETHISTERONE ACETATE [Suspect]
     Active Substance: ESTRADIOL\NORETHINDRONE ACETATE
     Indication: HORMONE REPLACEMENT THERAPY
     Dosage: 50/250 OT, 1 DF, 2/WK, UNKNOWN
     Route: 062

REACTIONS (5)
  - Application site erythema [Not Recovered/Not Resolved]
  - Therapy cessation [Not Recovered/Not Resolved]
  - Application site pain [Unknown]
  - Application site pruritus [Not Recovered/Not Resolved]
  - Application site rash [Not Recovered/Not Resolved]

NARRATIVE: CASE EVENT DATE: 20190325
